FAERS Safety Report 7006632-9 (Version None)
Quarter: 2010Q3

REPORT INFORMATION
  Report Type: 
  Country: None (occurrence: None)
  Receive Date: 20100921
  Receipt Date: 20100921
  Transmission Date: 20110219
  Serious: No
  Sender: FDA-Public Use
  Company Number: None

PATIENT
  Sex: Male

DRUGS (1)
  1. COPAXONE [Suspect]
     Dosage: 20 MG QD SQ
     Route: 058
     Dates: start: 20060101

REACTIONS (1)
  - URTICARIA [None]
